FAERS Safety Report 22823545 (Version 3)
Quarter: 2023Q4

REPORT INFORMATION
  Report Type: Spontaneous
  Country: US (occurrence: US)
  Receive Date: 20230815
  Receipt Date: 20231201
  Transmission Date: 20240109
  Serious: Yes (Other)
  Sender: FDA-Public Use
  Company Number: US-BAYER-2023A110490

PATIENT
  Age: 15 Year
  Sex: Male

DRUGS (4)
  1. JIVI [Suspect]
     Active Substance: DAMOCTOCOG ALFA PEGOL
     Indication: Factor VIII deficiency
     Dosage: 500 IU, PRN
     Route: 042
     Dates: start: 202303
  2. JIVI [Suspect]
     Active Substance: DAMOCTOCOG ALFA PEGOL
     Indication: Factor VIII deficiency
     Dosage: 500 IU, PRN
     Route: 042
     Dates: start: 202303
  3. JIVI [Suspect]
     Active Substance: DAMOCTOCOG ALFA PEGOL
     Indication: Factor VIII deficiency
     Dosage: 1 DF
     Route: 042
     Dates: start: 20230730
  4. JIVI [Suspect]
     Active Substance: DAMOCTOCOG ALFA PEGOL
     Indication: Factor VIII deficiency
     Dosage: 1 DF, PRN
     Route: 042
     Dates: start: 20230802

REACTIONS (5)
  - Haemarthrosis [None]
  - Haemarthrosis [None]
  - Palpitations [None]
  - Blood pressure abnormal [None]
  - Headache [None]

NARRATIVE: CASE EVENT DATE: 20230730
